FAERS Safety Report 16042712 (Version 1)
Quarter: 2019Q2

REPORT INFORMATION
  Report Type: Spontaneous
  Country: US (occurrence: US)
  Receive Date: 20190306
  Receipt Date: 20190306
  Transmission Date: 20190711
  Serious: Yes (Other)
  Sender: FDA-Public Use
  Company Number: None

PATIENT
  Age: 60 Year
  Sex: Female
  Weight: 83.3 kg

DRUGS (1)
  1. RITUXAN [Suspect]
     Active Substance: RITUXIMAB
     Indication: MYELOFIBROSIS
     Dosage: ?          OTHER FREQUENCY:WEEKLY;?
     Route: 042
     Dates: start: 20190204, end: 20190304

REACTIONS (10)
  - Chest discomfort [None]
  - Headache [None]
  - Nausea [None]
  - Drug hypersensitivity [None]
  - Pruritus [None]
  - Lacrimation increased [None]
  - Burning sensation [None]
  - Infusion related reaction [None]
  - Eye pruritus [None]
  - Throat tightness [None]

NARRATIVE: CASE EVENT DATE: 20190204
